FAERS Safety Report 21461733 (Version 2)
Quarter: 2022Q4

REPORT INFORMATION
  Report Type: Report from Study
  Country: US (occurrence: US)
  Receive Date: 20221015
  Receipt Date: 20221116
  Transmission Date: 20230113
  Serious: Yes (Other)
  Sender: FDA-Public Use
  Company Number: US-ABBVIE-4154977

PATIENT
  Sex: Female

DRUGS (3)
  1. HUMIRA [Suspect]
     Active Substance: ADALIMUMAB
     Indication: Uveitis
     Dosage: FORM STRENGTH- 40 MG
     Route: 058
  2. Pfizer/BioNTech [Concomitant]
     Indication: COVID-19 immunisation
     Dosage: 1 IN ONCE (1ST DOSE)
     Route: 030
     Dates: start: 20210305, end: 20210305
  3. Pfizer/BioNTech [Concomitant]
     Indication: COVID-19 immunisation
     Dosage: 1 IN ONCE (2ND DOSE)
     Route: 030
     Dates: start: 20210405, end: 20210405

REACTIONS (13)
  - Macular oedema [Not Recovered/Not Resolved]
  - Spinal operation [Unknown]
  - Eye laser surgery [Unknown]
  - Fall [Unknown]
  - Eye disorder [Not Recovered/Not Resolved]
  - Visual impairment [Unknown]
  - Limb operation [Unknown]
  - Photopsia [Unknown]
  - Macular degeneration [Unknown]
  - Glaucoma [Unknown]
  - Altered visual depth perception [Unknown]
  - Limb injury [Unknown]
  - Photophobia [Unknown]

NARRATIVE: CASE EVENT DATE: 20170101
